FAERS Safety Report 7963139-X (Version None)
Quarter: 2011Q4

REPORT INFORMATION
  Report Type: 
  Country: None (occurrence: None)
  Receive Date: 20111207
  Receipt Date: 20111122
  Transmission Date: 20120403
  Serious: Yes (Other)
  Sender: FDA-Public Use
  Company Number: ES-WATSON-2011-20515

PATIENT
  Age: 32 Year
  Sex: Female

DRUGS (1)
  1. GEMCITABINE [Suspect]
     Indication: CHEMOTHERAPY
     Dosage: 1000 MG/M2 ON DAYS 1 AND 8, ADMINISTERED Q 3 WEEKS
     Route: 050

REACTIONS (1)
  - RASH [None]
